FAERS Safety Report 5850379-9 (Version None)
Quarter: 2008Q3

REPORT INFORMATION
  Report Type: 
  Country: None (occurrence: None)
  Receive Date: 20080818
  Receipt Date: 20080804
  Transmission Date: 20090109
  Serious: Yes (Hospitalization)
  Sender: FDA-Public Use
  Company Number: 8035593

PATIENT
  Age: 23 Year
  Sex: Male
  Weight: 88.24 kg

DRUGS (4)
  1. KEPPRA [Suspect]
     Indication: CONVULSION
     Dosage: 500 MG 2/D
     Dates: end: 20080401
  2. KEPPRA [Suspect]
     Indication: CONVULSION
     Dosage: 750 MG
     Dates: start: 20080711
  3. AMANTADINE HCL [Concomitant]
  4. PROVIGIL [Concomitant]

REACTIONS (5)
  - ASTHENIA [None]
  - COORDINATION ABNORMAL [None]
  - DISORIENTATION [None]
  - DROOLING [None]
  - POSTURE ABNORMAL [None]
